FAERS Safety Report 4511539-2 (Version None)
Quarter: 2004Q4

REPORT INFORMATION
  Report Type: 
  Country: None (occurrence: None)
  Receive Date: 20041129
  Receipt Date: 20040916
  Transmission Date: 20050328
  Serious: Yes (Other)
  Sender: FDA-Public Use
  Company Number: US-BRISTOL-MYERS SQUIBB COMPANY-12704961

PATIENT
  Age: 19 Year
  Sex: Female

DRUGS (3)
  1. ABILIFY [Suspect]
  2. LITHIUM [Concomitant]
  3. TOPAMAX [Concomitant]

REACTIONS (1)
  - SUICIDAL IDEATION [None]
